FAERS Safety Report 25369762 (Version 2)
Quarter: 2025Q2

REPORT INFORMATION
  Report Type: Report from Study
  Country: GB (occurrence: GB)
  Receive Date: 20250528
  Receipt Date: 20250609
  Transmission Date: 20250716
  Serious: Yes (Other)
  Sender: TAKEDA
  Company Number: GB-TAKEDA-2025TUS049038

PATIENT
  Sex: Female

DRUGS (2)
  1. FRUQUINTINIB [Suspect]
     Active Substance: FRUQUINTINIB
     Indication: Adenocarcinoma of colon
     Dosage: 5 MILLIGRAM, QD
     Dates: start: 20250224, end: 20250514
  2. FRUQUINTINIB [Suspect]
     Active Substance: FRUQUINTINIB
     Indication: Metastases to liver

REACTIONS (4)
  - Adenocarcinoma of colon [Unknown]
  - Metastases to lung [Unknown]
  - Metastases to liver [Unknown]
  - Drug ineffective [Unknown]
